FAERS Safety Report 5205776-1 (Version None)
Quarter: 2007Q1

REPORT INFORMATION
  Report Type: 
  Country: None (occurrence: None)
  Receive Date: 20070111
  Receipt Date: 20070103
  Transmission Date: 20070707
  Serious: Yes (Hospitalization)
  Sender: FDA-Public Use
  Company Number: IT-AMGEN-UK198795

PATIENT
  Sex: Male

DRUGS (4)
  1. NEUPOGEN [Suspect]
     Indication: NEUTROPENIA
     Route: 058
     Dates: start: 20060929, end: 20060929
  2. FLUDARA [Concomitant]
     Route: 042
  3. ENDOXAN [Concomitant]
     Route: 042
  4. RITUXIMAB [Concomitant]
     Route: 042

REACTIONS (2)
  - DERMATITIS ALLERGIC [None]
  - RASH [None]
